FAERS Safety Report 5193464-X (Version None)
Quarter: 2006Q4

REPORT INFORMATION
  Report Type: 
  Country: None (occurrence: None)
  Receive Date: 20061228
  Receipt Date: 20060502
  Transmission Date: 20070319
  Serious: No
  Sender: FDA-Public Use
  Company Number: US-GLAXOSMITHKLINE-A0604057A

PATIENT
  Age: 57 Year
  Sex: Female

DRUGS (7)
  1. FLONASE [Suspect]
     Dosage: 2SPR TWICE PER DAY
     Route: 045
     Dates: start: 20060427
  2. METFORMIN HCL [Concomitant]
  3. ASPIRIN [Concomitant]
  4. UNKNOWN MEDICATION [Concomitant]
  5. NOVOLOG [Concomitant]
  6. VERAPAMIL ER [Concomitant]
  7. HYDROCHLOROTHIAZIDE [Concomitant]

REACTIONS (2)
  - DRUG INEFFECTIVE [None]
  - SNEEZING [None]
